FAERS Safety Report 8645084 (Version 5)
Quarter: 2012Q4

REPORT INFORMATION
  Report Type: 
  Country: JP (occurrence: JP)
  Receive Date: 20120702
  Receipt Date: 20120919
  Transmission Date: 20130627
  Serious: Yes (Hospitalization, Disabling, Other)
  Sender: FDA-Public Use
  Company Number: PHHY2012JP055869

PATIENT
  Age: 67 None
  Sex: Female
  Weight: 35 kg

DRUGS (7)
  1. ZOMETA [Suspect]
     Indication: BREAST CANCER
     Route: 041
     Dates: start: 201007, end: 201108
  2. ZOMETA [Suspect]
     Route: 041
     Dates: start: 201207
  3. AROMASIN [Concomitant]
     Indication: BREAST CANCER
     Dosage: 25 mg, UNK
     Route: 048
  4. GRAMALIL [Concomitant]
     Indication: PARKINSON^S DISEASE
     Dosage: 50 mg, UNK
     Route: 048
  5. ARICEPT [Concomitant]
     Indication: PARKINSON^S DISEASE
     Dosage: 10 mg, UNK
     Route: 048
  6. LYRICA [Concomitant]
     Dosage: 150 mg, UNK
     Route: 048
  7. ANTIBIOTICS [Concomitant]

REACTIONS (19)
  - Osteonecrosis of jaw [Recovering/Resolving]
  - Exposed bone in jaw [Unknown]
  - Pain in jaw [Recovering/Resolving]
  - Osteitis [Unknown]
  - Oral mucosal erythema [Unknown]
  - Gingival infection [Unknown]
  - Periodontitis [Recovering/Resolving]
  - Bone pain [Unknown]
  - Oral herpes [Recovering/Resolving]
  - Oral candidiasis [Recovering/Resolving]
  - Cheilitis [Unknown]
  - Dysarthria [Unknown]
  - Tooth loss [Recovering/Resolving]
  - Dyslalia [Unknown]
  - Wound complication [Unknown]
  - Eating disorder [Recovering/Resolving]
  - Poor personal hygiene [Recovering/Resolving]
  - Osteolysis [Unknown]
  - Loose tooth [Unknown]
